FAERS Safety Report 9127525 (Version 1)
Quarter: 2013Q1

REPORT INFORMATION
  Report Type: Spontaneous
  Country: US (occurrence: US)
  Receive Date: 20130228
  Receipt Date: 20130228
  Transmission Date: 20140127
  Serious: No
  Sender: FDA-Public Use
  Company Number: US-GLAXOSMITHKLINE-A0982165A

PATIENT
  Age: 60 Year
  Sex: Female

DRUGS (4)
  1. LAMICTAL [Suspect]
     Indication: HEADACHE
     Dosage: 25MG PER DAY
     Route: 048
     Dates: start: 201206
  2. PAROXETINE [Concomitant]
  3. KLONOPIN [Concomitant]
  4. METHYLPHENIDATE [Concomitant]

REACTIONS (2)
  - No adverse event [Not Recovered/Not Resolved]
  - Headache [Unknown]
